FAERS Safety Report 7271541-7 (Version None)
Quarter: 2011Q1

REPORT INFORMATION
  Report Type: 
  Country: None (occurrence: None)
  Receive Date: 20110203
  Receipt Date: 20110119
  Transmission Date: 20110831
  Serious: Yes (Death)
  Sender: FDA-Public Use
  Company Number: GB-RANBAXY-2011R1-41280

PATIENT
  Age: 68 Year
  Sex: Female

DRUGS (13)
  1. ZOPICLONE [Suspect]
     Dosage: 15 MG, UNK
     Route: 048
  2. THIAMINE [Concomitant]
     Indication: PERNICIOUS ANAEMIA
     Dosage: UNK
     Route: 065
  3. FOLIC ACID [Concomitant]
     Indication: PRODUCT USED FOR UNKNOWN INDICATION
     Dosage: UNK
     Route: 065
  4. VITAMIN B COMPOUND STRONG [Concomitant]
     Indication: PERNICIOUS ANAEMIA
     Dosage: UNK
     Route: 065
  5. CODEINE SULFATE [Suspect]
     Indication: PRODUCT USED FOR UNKNOWN INDICATION
     Dosage: UNK
     Route: 048
  6. OMEPRAZOLE [Concomitant]
     Indication: ABDOMINAL DISCOMFORT
     Dosage: UNK
     Route: 065
  7. SANDO-K [Concomitant]
     Indication: RENAL DISORDER
     Dosage: UNK
     Route: 065
  8. SERTRALINE [Concomitant]
     Indication: DEPRESSION
     Dosage: UNK
     Route: 065
  9. NUROFEN PLUS [Suspect]
     Indication: PRODUCT USED FOR UNKNOWN INDICATION
     Dosage: UNK
     Route: 048
  10. ZOPICLONE [Suspect]
     Indication: SLEEP DISORDER
     Dosage: 11.25 MG, UNK
     Route: 048
     Dates: start: 20100319
  11. METHADON HCL TAB [Suspect]
     Indication: PRODUCT USED FOR UNKNOWN INDICATION
     Dosage: UNK
     Route: 065
  12. NITROFURANTOIN [Concomitant]
     Indication: PRODUCT USED FOR UNKNOWN INDICATION
     Dosage: 100 MG, UNK
     Route: 065
  13. VITAMIN B-12 [Concomitant]
     Indication: PERNICIOUS ANAEMIA
     Dosage: UNK
     Route: 065

REACTIONS (2)
  - DEPENDENCE [None]
  - CARDIAC ARREST [None]
